FAERS Safety Report 18142821 (Version 1)
Quarter: 2020Q3

REPORT INFORMATION
  Report Type: Report from Study
  Country: US (occurrence: US)
  Receive Date: 20200812
  Receipt Date: 20200812
  Transmission Date: 20201103
  Serious: Yes (Other)
  Sender: FDA-Public Use
  Company Number: US-NOVOPROD-745739

PATIENT
  Sex: Female
  Weight: 62.6 kg

DRUGS (1)
  1. NOVOLOG [Suspect]
     Active Substance: INSULIN ASPART
     Indication: TYPE 1 DIABETES MELLITUS
     Dosage: 35 IU OR SLIDING SCALE BASED ON FOOD INTAKE
     Route: 058

REACTIONS (12)
  - Diabetic retinopathy [Not Recovered/Not Resolved]
  - Condition aggravated [Not Recovered/Not Resolved]
  - Headache [Unknown]
  - Vertigo [Unknown]
  - Lyme disease [Unknown]
  - Sjogren^s syndrome [Unknown]
  - Muscle spasms [Unknown]
  - Contusion [Unknown]
  - Foot fracture [Unknown]
  - Fall [Not Recovered/Not Resolved]
  - Tremor [Unknown]
  - Multiple sclerosis [Unknown]

NARRATIVE: CASE EVENT DATE: 2020
